FAERS Safety Report 16185016 (Version 1)
Quarter: 2019Q2

REPORT INFORMATION
  Report Type: Spontaneous
  Country: US (occurrence: US)
  Receive Date: 20190411
  Receipt Date: 20190411
  Transmission Date: 20190711
  Serious: Yes (Other)
  Sender: FDA-Public Use
  Company Number: US-TEVA-2019-US-1034976

PATIENT
  Age: 49 Year
  Sex: Female

DRUGS (1)
  1. COPAXONE [Suspect]
     Active Substance: GLATIRAMER ACETATE
     Indication: MULTIPLE SCLEROSIS
     Route: 058
     Dates: start: 20181124

REACTIONS (7)
  - Pain [Recovered/Resolved]
  - Beta haemolytic streptococcal infection [Unknown]
  - Headache [Recovered/Resolved]
  - Gait disturbance [Recovered/Resolved]
  - Urinary tract infection [Unknown]
  - Vision blurred [Recovered/Resolved]
  - Multiple sclerosis relapse [Unknown]

NARRATIVE: CASE EVENT DATE: 201803
